FAERS Safety Report 7554971-5 (Version None)
Quarter: 2011Q2

REPORT INFORMATION
  Report Type: 
  Country: None (occurrence: None)
  Receive Date: 20110617
  Receipt Date: 20110606
  Transmission Date: 20111010
  Serious: Yes (Life-Threatening, Hospitalization, Disabling)
  Sender: FDA-Public Use
  Company Number: AT-JNJFOC-20110603221

PATIENT
  Age: 38 Year
  Sex: Female

DRUGS (5)
  1. MEXALEN [Concomitant]
     Indication: ANKYLOSING SPONDYLITIS
     Dosage: AS NEEDED
     Route: 048
  2. PANTOPRAZOLE SODIUM [Concomitant]
     Dosage: AS NEEDED
     Route: 065
  3. SERTRALINE HYDROCHLORIDE [Concomitant]
     Route: 048
     Dates: start: 20110314
  4. REMICADE [Suspect]
     Indication: PRODUCT USED FOR UNKNOWN INDICATION
     Route: 042
     Dates: start: 20040101, end: 20110317
  5. DICLOFENAC SODIUM [Concomitant]
     Indication: ANKYLOSING SPONDYLITIS
     Dosage: AS NEEDED
     Route: 048
     Dates: start: 20101201

REACTIONS (1)
  - ANAPLASTIC ASTROCYTOMA [None]
